FAERS Safety Report 20647656 (Version 1)
Quarter: 2022Q1

REPORT INFORMATION
  Report Type: Spontaneous
  Country: IN (occurrence: IN)
  Receive Date: 20220329
  Receipt Date: 20220329
  Transmission Date: 20220423
  Serious: Yes (Death, Life-Threatening, Hospitalization, Other)
  Sender: FDA-Public Use
  Company Number: IN-Accord-258521

PATIENT
  Age: 60 Year
  Sex: Female

DRUGS (5)
  1. METHOTREXATE [Interacting]
     Active Substance: METHOTREXATE
     Indication: Rheumatoid arthritis
     Dosage: ORAL LOW METHOTREXATE. THE LAST DOSE WAS TAKEN TWO DAYS BEFORE ADMISSION.
     Route: 048
  2. IOHEXOL [Interacting]
     Active Substance: IOHEXOL
     Indication: Preoperative care
     Dosage: 18 HOURS PRIOR TO THE SURGERY AND THE SECOND DOSE 24 HOURS
     Route: 042
  3. MANNITOL [Suspect]
     Active Substance: MANNITOL
     Indication: Postoperative care
  4. LEVETIRACETAM [Concomitant]
     Active Substance: LEVETIRACETAM
     Indication: Postoperative care
     Route: 042
  5. ACETAMINOPHEN [Concomitant]
     Active Substance: ACETAMINOPHEN
     Indication: Postoperative care

REACTIONS (9)
  - Rash erythematous [Fatal]
  - Pancytopenia [Fatal]
  - Hepatic function abnormal [Fatal]
  - Renal tubular injury [Fatal]
  - Haemorrhage intracranial [Fatal]
  - Leukoencephalopathy [Fatal]
  - Cardiac failure [Fatal]
  - Multiple organ dysfunction syndrome [Fatal]
  - Drug interaction [Fatal]
